FAERS Safety Report 21086892 (Version 2)
Quarter: 2022Q3

REPORT INFORMATION
  Report Type: Spontaneous
  Country: US (occurrence: US)
  Receive Date: 20220715
  Receipt Date: 20220811
  Transmission Date: 20221026
  Serious: Yes (Other)
  Sender: FDA-Public Use
  Company Number: US-ALK-ABELLO A/S-2022AA002180

PATIENT

DRUGS (35)
  1. BETULA PENDULA POLLEN [Suspect]
     Active Substance: BETULA PENDULA POLLEN
     Indication: Skin test
     Dosage: UNK
     Route: 023
     Dates: start: 20220628
  2. BETULA PENDULA POLLEN [Suspect]
     Active Substance: BETULA PENDULA POLLEN
     Dosage: 1:20 W/V, PERCUTANEOUS
     Route: 003
     Dates: start: 20220628
  3. POPULUS ALBA POLLEN [Suspect]
     Active Substance: POPULUS ALBA POLLEN
     Indication: Skin test
     Dosage: 1:20 W/V, PERCUTANEOUS
     Route: 003
     Dates: start: 20220628
  4. QUERCUS ALBA POLLEN [Suspect]
     Active Substance: QUERCUS ALBA POLLEN
     Indication: Skin test
     Dosage: 1:20 W/V, PERCUTANEOUS
     Route: 003
     Dates: start: 20220628
  5. ULMUS AMERICANA POLLEN [Suspect]
     Active Substance: ULMUS AMERICANA POLLEN
     Indication: Skin test
     Dosage: UNK
     Route: 023
     Dates: start: 20220628
  6. ULMUS AMERICANA POLLEN [Suspect]
     Active Substance: ULMUS AMERICANA POLLEN
     Dosage: 1:20 W/V, PERCCUTANEOUS
     Route: 003
     Dates: start: 20220628
  7. PINUS STROBUS POLLEN [Suspect]
     Active Substance: PINUS STROBUS POLLEN
     Indication: Skin test
     Dosage: 1:20 W/V, PERCUTANEOUS
     Route: 003
     Dates: start: 20220628
  8. FRAXINUS AMERICANA POLLEN [Suspect]
     Active Substance: FRAXINUS AMERICANA POLLEN
     Indication: Skin test
     Dosage: UNK
     Route: 023
     Dates: start: 20220628
  9. FRAXINUS AMERICANA POLLEN [Suspect]
     Active Substance: FRAXINUS AMERICANA POLLEN
     Dosage: 1:20 W/V, PERCUTANEOUS
     Route: 003
     Dates: start: 20220628
  10. DACTYLIS GLOMERATA POLLEN [Suspect]
     Active Substance: DACTYLIS GLOMERATA POLLEN
     Indication: Skin test
     Dosage: 100,000 BAU/ML, PERCUTANEOUS
     Route: 003
     Dates: start: 20220628
  11. PHLEUM PRATENSE POLLEN [Suspect]
     Active Substance: PHLEUM PRATENSE POLLEN
     Indication: Skin test
     Dosage: 100,000BAU/ML, PERCUTANEOUS
     Route: 003
     Dates: start: 20220628
  12. POA PRATENSIS POLLEN [Suspect]
     Active Substance: POA PRATENSIS POLLEN
     Indication: Skin test
     Dosage: 100,000 BAU/ML, PERCUTANEOUS
     Route: 003
     Dates: start: 20220628
  13. ALLERGENIC EXTRACT- REDTOP AGROSTIS ALBA [Suspect]
     Active Substance: AGROSTIS GIGANTEA POLLEN
     Indication: Skin test
     Dosage: 100,000BAU/ML, PERCUTANEOUS
     Route: 003
     Dates: start: 20220628
  14. CHENOPODIUM ALBUM POLLEN [Suspect]
     Active Substance: CHENOPODIUM ALBUM POLLEN
     Indication: Skin test
     Dosage: 1:20 W/V, PERCUTANEOUS
     Route: 003
     Dates: start: 20220628
  15. ANAS PLATYRHYNCHOS FEATHER\ANSER ANSER FEATHER\GALLUS GALLUS FEATHER [Suspect]
     Active Substance: ANAS PLATYRHYNCHOS FEATHER\ANSER ANSER FEATHER\GALLUS GALLUS FEATHER
     Indication: Skin test
     Dosage: 1:20 W/V, PERCUTANEOUS
     Route: 003
     Dates: start: 20220628
  16. PLANTAGO LANCEOLATA POLLEN [Suspect]
     Active Substance: PLANTAGO LANCEOLATA POLLEN
     Indication: Skin test
     Dosage: 1:20 W/V, PERCUTANEOUS
     Route: 003
     Dates: start: 20220628
  17. XANTHIUM STRUMARIUM POLLEN [Suspect]
     Active Substance: XANTHIUM STRUMARIUM POLLEN
     Indication: Skin test
     Dosage: 1:20 W/V, PERCUTANEOUS
     Route: 003
     Dates: start: 20220628
  18. IVA ANNUA POLLEN [Suspect]
     Active Substance: IVA ANNUA POLLEN
     Indication: Skin test
     Dosage: 1:20 W/V, PERCUTANEOUS
     Route: 003
     Dates: start: 20220628
  19. ASPERGILLUS FUMIGATUS [Suspect]
     Active Substance: ASPERGILLUS FUMIGATUS
     Indication: Skin test
     Dosage: 1:20 W/V, PERCUTANEOUS
     Route: 003
     Dates: start: 20220628
  20. CLADOSPORIUM CLADOSPORIOIDES [Suspect]
     Active Substance: CLADOSPORIUM CLADOSPORIOIDES
     Indication: Skin test
     Dosage: 1:20 W/V, PERCUTANEOUS
     Route: 003
     Dates: start: 20220628
  21. PENICILLIUM NOTATUM [Suspect]
     Active Substance: PENICILLIUM CHRYSOGENUM VAR. CHRYSOGENUM
     Indication: Skin test
     Dosage: 1:20 W/V, PERCUTANEOUS
     Route: 003
     Dates: start: 20220628
  22. DERMATOPHAGOIDES PTERONYSSINUS [Suspect]
     Active Substance: DERMATOPHAGOIDES PTERONYSSINUS
     Indication: Skin test
     Dosage: 10,000AU/ML, PERCUTANEOUS
     Route: 003
     Dates: start: 20220628
  23. DERMATOPHAGOIDES FARINAE [Suspect]
     Active Substance: DERMATOPHAGOIDES FARINAE
     Indication: Skin test
     Dosage: 10,000AU/ML, PERCUTANEOUS
     Route: 003
     Dates: start: 20220628
  24. CANIS LUPUS FAMILIARIS SKIN [Suspect]
     Active Substance: CANIS LUPUS FAMILIARIS SKIN
     Indication: Skin test
     Dosage: 1:20 W/V, PERCUTANEOUS
     Route: 003
     Dates: start: 20220628
  25. FELIS CATUS HAIR [Suspect]
     Active Substance: FELIS CATUS HAIR
     Indication: Skin test
     Dosage: 10,000 BAU/ML, PERCUTANEOUS
     Route: 003
     Dates: start: 20220628
  26. MUS MUSCULUS SKIN [Suspect]
     Active Substance: MUS MUSCULUS SKIN
     Indication: Skin test
     Dosage: 1:20 W/V, PERCUTANEOUS
     Route: 003
     Dates: start: 20220628
  27. PERIPLANETA AMERICANA [Suspect]
     Active Substance: PERIPLANETA AMERICANA
     Indication: Skin test
     Dosage: 1:20 W/V, PERCUTANEOUS
     Route: 003
     Dates: start: 20220628
  28. ACER SACCHARUM POLLEN [Suspect]
     Active Substance: ACER SACCHARUM POLLEN
     Indication: Skin test
     Dosage: UNK
     Route: 003
     Dates: start: 20220628
  29. ACER SACCHARUM POLLEN [Suspect]
     Active Substance: ACER SACCHARUM POLLEN
     Dosage: 1:20 W/V, PERCUTANEOUS
     Route: 003
  30. CARYA OVATA POLLEN [Suspect]
     Active Substance: CARYA OVATA POLLEN
     Indication: Skin test
     Dosage: UNK
     Route: 023
     Dates: start: 20220628
  31. CARYA OVATA POLLEN [Suspect]
     Active Substance: CARYA OVATA POLLEN
     Dosage: 1:20 W/V, PERCUTANEOUS
     Route: 003
     Dates: start: 20220628
  32. SALIX NIGRA POLLEN [Suspect]
     Active Substance: SALIX NIGRA POLLEN
     Indication: Skin test
     Dosage: 1:20 W/V, PERCUTANEOUS
     Route: 003
     Dates: start: 20220628
  33. AMBROSIA ARTEMISIIFOLIA POLLEN\AMBROSIA TRIFIDA POLLEN [Suspect]
     Active Substance: AMBROSIA ARTEMISIIFOLIA POLLEN\AMBROSIA TRIFIDA POLLEN
     Indication: Skin test
     Dosage: 1:20 W/V, PERCUTANEOUS
     Route: 003
     Dates: start: 20220628
  34. STERILE DILUENT FOR ALLERGENIC EXTRACT NOS [Suspect]
     Active Substance: ALBUMIN HUMAN OR GLYCERIN OR PHENOL
     Indication: Skin test
     Dosage: 1:20, PERCUTANEOUS
     Route: 003
     Dates: start: 20220628
  35. HISTAMINE PHOSPHATE [Suspect]
     Active Substance: HISTAMINE PHOSPHATE
     Indication: Skin test
     Dosage: 1MG/ML, PERCUTANEOUS
     Route: 003
     Dates: start: 20220628

REACTIONS (3)
  - Anaphylactic reaction [Recovered/Resolved]
  - Skin test positive [Recovered/Resolved]
  - False negative investigation result [Unknown]

NARRATIVE: CASE EVENT DATE: 20220628
